FAERS Safety Report 7531823-8 (Version None)
Quarter: 2011Q2

REPORT INFORMATION
  Report Type: 
  Country: None (occurrence: None)
  Receive Date: 20110607
  Receipt Date: 20110607
  Transmission Date: 20111010
  Serious: Yes (Hospitalization)
  Sender: FDA-Public Use
  Company Number: None

PATIENT
  Sex: Female
  Weight: 49.5 kg

DRUGS (3)
  1. TAXOL [Suspect]
     Dosage: 310 MG
  2. BEVACIZUMAB (RHUMAB VEGF) [Suspect]
     Dosage: 790 MG
  3. CARBOPLATIN [Suspect]
     Dosage: 560 MG

REACTIONS (5)
  - HYPOVOLAEMIA [None]
  - NAUSEA [None]
  - ASTHENIA [None]
  - HYPONATRAEMIA [None]
  - VOMITING [None]
